FAERS Safety Report 9290028 (Version 1)
Quarter: 2013Q2

REPORT INFORMATION
  Report Type: Spontaneous
  Country: FR (occurrence: None)
  Receive Date: 20130510
  Receipt Date: 20130510
  Transmission Date: 20140414
  Serious: Yes (Hospitalization)
  Sender: FDA-Public Use
  Company Number: SYM-2013-03423

PATIENT
  Age: 78 Year
  Sex: Male

DRUGS (3)
  1. FLAGYL [Suspect]
     Indication: LUNG DISORDER
     Route: 048
     Dates: start: 20130320, end: 20130328
  2. CEFTRIAXONE [Suspect]
     Indication: LUNG DISORDER
     Route: 042
     Dates: start: 20130318, end: 20130328
  3. ZITHROMAX [Suspect]
     Indication: LUNG DISORDER
     Route: 048
     Dates: start: 20130318, end: 20130328

REACTIONS (3)
  - Cholestasis [None]
  - Lipase increased [None]
  - Amylase increased [None]
